FAERS Safety Report 10029596 (Version 1)
Quarter: 2014Q1

REPORT INFORMATION
  Report Type: Spontaneous
  Country: US (occurrence: None)
  Receive Date: 20140320
  Receipt Date: 20140320
  Transmission Date: 20141002
  Serious: Yes (Other)
  Sender: FDA-Public Use
  Company Number: None

PATIENT
  Age: 38 Year
  Sex: Male

DRUGS (1)
  1. PREDNISOLONE ACETATE 1% [Suspect]
     Indication: IRITIS
     Dosage: 1 DROP 4X/DAY EYE
     Dates: start: 20140311, end: 20140319

REACTIONS (1)
  - No therapeutic response [None]
